FAERS Safety Report 10489485 (Version 2)
Quarter: 2014Q4

REPORT INFORMATION
  Report Type: Spontaneous
  Country: JP (occurrence: None)
  Receive Date: 20140930
  Receipt Date: 20141103
  Transmission Date: 20150528
  Serious: Yes (Hospitalization, Other)
  Sender: FDA-Public Use
  Company Number: JP-017169

PATIENT
  Age: 68 Year
  Sex: Male
  Weight: 56 kg

DRUGS (11)
  1. OXYCONTIN [Suspect]
     Active Substance: OXYCODONE HYDROCHLORIDE
     Indication: CANCER PAIN
     Route: 048
     Dates: start: 20140529, end: 20140810
  2. DECADRON [Suspect]
     Active Substance: DEXAMETHASONE
     Indication: HORMONE-REFRACTORY PROSTATE CANCER
     Route: 048
     Dates: start: 20101215, end: 20140625
  3. TAXOTERE [Concomitant]
     Active Substance: DOCETAXEL
  4. ZOMETA [Concomitant]
     Active Substance: ZOLEDRONIC ACID
  5. DEGARELIX [Concomitant]
     Active Substance: DEGARELIX
  6. TRAMAL [Concomitant]
     Active Substance: TRAMADOL
  7. XTANDI [Suspect]
     Active Substance: ENZALUTAMIDE
     Indication: HORMONE-REFRACTORY PROSTATE CANCER
     Route: 048
     Dates: start: 20140626, end: 20140723
  8. ADALAT [Concomitant]
     Active Substance: NIFEDIPINE
  9. DEGARELIX (GONAX) 80MG [Suspect]
     Active Substance: DEGARELIX
     Indication: HORMONE-REFRACTORY PROSTATE CANCER
     Dosage: (80 MG 1X/4 WEEKS SUBCUTANEOUS)
     Route: 058
     Dates: start: 20140310
  10. URIEF [Concomitant]
     Active Substance: SILODOSIN
  11. OLMETEC [Concomitant]
     Active Substance: OLMESARTAN MEDOXOMIL

REACTIONS (8)
  - Hypoaesthesia [None]
  - Intentional product use issue [None]
  - Malaise [None]
  - Hypersomnia [None]
  - Dyskinesia [None]
  - Decreased appetite [None]
  - Intentional product misuse [None]
  - Somnolence [None]

NARRATIVE: CASE EVENT DATE: 20140710
